FAERS Safety Report 8158011-9 (Version None)
Quarter: 2012Q1

REPORT INFORMATION
  Report Type: 
  Country: None (occurrence: None)
  Receive Date: 20120222
  Receipt Date: 20120213
  Transmission Date: 20120608
  Serious: Yes (Other)
  Sender: FDA-Public Use
  Company Number: PHHY2012CA013363

PATIENT
  Sex: Male

DRUGS (1)
  1. RASILEZ [Suspect]

REACTIONS (3)
  - LUNG NEOPLASM [None]
  - RENAL NEOPLASM [None]
  - BONE NEOPLASM [None]
